FAERS Safety Report 8809600 (Version 3)
Quarter: 2015Q1

REPORT INFORMATION
  Report Type: Report from Study
  Country: US (occurrence: US)
  Receive Date: 20120926
  Receipt Date: 20150304
  Transmission Date: 20150721
  Serious: Yes (Death, Hospitalization, Other)
  Sender: FDA-Public Use
  Company Number: US-ROCHE-1103573

PATIENT
  Sex: Female
  Weight: 59 kg

DRUGS (33)
  1. XELODA [Suspect]
     Active Substance: CAPECITABINE
     Indication: BREAST CANCER FEMALE
     Route: 065
     Dates: start: 200608
  2. NAVELBINE [Concomitant]
     Active Substance: VINORELBINE TARTRATE
     Route: 065
  3. BUTALBITAL [Concomitant]
     Active Substance: BUTALBITAL
     Route: 048
  4. AVASTIN [Suspect]
     Active Substance: BEVACIZUMAB
     Indication: BREAST CANCER FEMALE
     Route: 042
     Dates: start: 20071211, end: 20101005
  5. FASLODEX [Concomitant]
     Active Substance: FULVESTRANT
  6. ABRAXANE [Concomitant]
     Active Substance: PACLITAXEL
     Route: 042
  7. ASPIRIN. [Concomitant]
     Active Substance: ASPIRIN
  8. ADRIAMYCIN [Concomitant]
     Active Substance: DOXORUBICIN HYDROCHLORIDE
  9. CYCLOPHOSPHAMIDE. [Concomitant]
     Active Substance: CYCLOPHOSPHAMIDE
  10. BENADRYL [Concomitant]
     Active Substance: DIPHENHYDRAMINE HYDROCHLORIDE
     Route: 065
  11. OXYCODONE [Concomitant]
     Active Substance: OXYCODONE
     Route: 048
  12. AUGMENTIN [Concomitant]
     Active Substance: AMOXICILLIN\CLAVULANATE POTASSIUM
  13. HEPARIN SODIUM. [Concomitant]
     Active Substance: HEPARIN SODIUM
     Route: 065
  14. DEXAMETHASONE SODIUM PHOSPHATE. [Concomitant]
     Active Substance: DEXAMETHASONE SODIUM PHOSPHATE
     Route: 042
  15. DARBEPOETIN ALFA [Concomitant]
     Active Substance: DARBEPOETIN ALFA
     Route: 065
  16. ATIVAN [Concomitant]
     Active Substance: LORAZEPAM
  17. ZOMETA [Concomitant]
     Active Substance: ZOLEDRONIC ACID
     Route: 065
  18. ALDACTONE (UNITED STATES) [Concomitant]
     Route: 065
  19. LIDODERM [Concomitant]
     Active Substance: LIDOCAINE
     Route: 061
  20. HYDROCORTISONE SUCCINATE [Concomitant]
  21. FEMARA [Concomitant]
     Active Substance: LETROZOLE
  22. ALOXI [Concomitant]
     Active Substance: PALONOSETRON HYDROCHLORIDE
     Route: 042
  23. OXAZEPAM. [Concomitant]
     Active Substance: OXAZEPAM
     Route: 048
  24. MS CONTIN [Concomitant]
     Active Substance: MORPHINE SULFATE
     Route: 048
  25. PYRIDIUM [Concomitant]
     Active Substance: PHENAZOPYRIDINE
     Route: 048
  26. ZYRTEC [Concomitant]
     Active Substance: CETIRIZINE HYDROCHLORIDE
     Route: 048
  27. CYTOMEL [Concomitant]
     Active Substance: LIOTHYRONINE SODIUM
     Route: 048
  28. ZOLEDRONATE [Concomitant]
     Active Substance: ZOLEDRONIC ACID
     Route: 065
  29. AVASTIN [Suspect]
     Active Substance: BEVACIZUMAB
     Indication: BREAST CANCER METASTATIC
     Route: 042
     Dates: start: 200705
  30. TAMOXIFEN [Concomitant]
     Active Substance: TAMOXIFEN
  31. OXYCONTIN [Concomitant]
     Active Substance: OXYCODONE HYDROCHLORIDE
     Route: 048
  32. MAALOX (CALCIUM CARBONATE) [Concomitant]
  33. ZITHROMAX [Concomitant]
     Active Substance: AZITHROMYCIN DIHYDRATE

REACTIONS (32)
  - Vomiting [Unknown]
  - Arthralgia [Unknown]
  - Dyspnoea exertional [Unknown]
  - Disease progression [Fatal]
  - Fatigue [Unknown]
  - Diarrhoea [Unknown]
  - Musculoskeletal stiffness [Unknown]
  - Breast cancer metastatic [Fatal]
  - Anaemia [Unknown]
  - Sinusitis [Unknown]
  - Otorrhoea [Unknown]
  - Feeling hot [Unknown]
  - Back pain [Unknown]
  - Metastases to bone [Unknown]
  - Epistaxis [Unknown]
  - White blood cell count decreased [Unknown]
  - Insomnia [Unknown]
  - Pyrexia [Unknown]
  - Fractured sacrum [Unknown]
  - Neutropenia [Unknown]
  - Constipation [Unknown]
  - Oedema peripheral [Unknown]
  - Bronchitis [Unknown]
  - Atelectasis [Unknown]
  - Upper respiratory tract infection [Recovering/Resolving]
  - Fall [Unknown]
  - Ear pain [Unknown]
  - Pollakiuria [Unknown]
  - Phlebolith [Unknown]
  - Tympanic membrane hyperaemia [Unknown]
  - Musculoskeletal discomfort [Unknown]
  - Migraine [Unknown]
